FAERS Safety Report 6872788-1 (Version None)
Quarter: 2010Q3

REPORT INFORMATION
  Report Type: 
  Country: None (occurrence: None)
  Receive Date: 20100723
  Receipt Date: 20100713
  Transmission Date: 20110219
  Serious: Yes (Life-Threatening, Hospitalization, Disabling)
  Sender: FDA-Public Use
  Company Number: ES-GENENTECH-304233

PATIENT
  Sex: Male
  Weight: 77.5 kg

DRUGS (5)
  1. MABTHERA [Suspect]
     Indication: CHRONIC LYMPHOCYTIC LEUKAEMIA
     Dosage: 630 MG, UNK
     Route: 042
     Dates: start: 20100212, end: 20100317
  2. MABTHERA [Suspect]
     Dosage: 850 MG, UNK
     Route: 042
     Dates: start: 20100317, end: 20100623
  3. FLUDARABINE PHOSPHATE [Suspect]
     Indication: CHRONIC LYMPHOCYTIC LEUKAEMIA
     Dosage: 80 MG, UNK
     Route: 048
     Dates: start: 20080512, end: 20081011
  4. BENDAMUSTINE [Suspect]
     Indication: CHRONIC LYMPHOCYTIC LEUKAEMIA
     Dosage: 151 MG, UNK
     Route: 042
     Dates: start: 20100212, end: 20100623
  5. CHOP REGIMEN [Concomitant]
     Indication: CHRONIC LYMPHOCYTIC LEUKAEMIA
     Dosage: UNK

REACTIONS (1)
  - PROGRESSIVE MULTIFOCAL LEUKOENCEPHALOPATHY [None]
